FAERS Safety Report 6524506-4 (Version None)
Quarter: 2010Q1

REPORT INFORMATION
  Report Type: 
  Country: None (occurrence: None)
  Receive Date: 20100104
  Receipt Date: 20091222
  Transmission Date: 20100710
  Serious: No
  Sender: FDA-Public Use
  Company Number: US-JNJFOC-20091206733

PATIENT
  Sex: Female

DRUGS (4)
  1. DURAGESIC-100 [Suspect]
     Indication: ABDOMINAL PAIN
     Route: 062
  2. DURAGESIC-100 [Suspect]
     Route: 062
  3. LOTREL [Concomitant]
     Indication: HYPERTENSION
     Dosage: 5/20 TABLET
     Route: 048
  4. PREMARIN [Concomitant]
     Indication: HOT FLUSH
     Dosage: .625 TABLET
     Route: 048

REACTIONS (4)
  - APPLICATION SITE PRURITUS [None]
  - ARTHRITIS [None]
  - DRUG ADMINISTERED AT INAPPROPRIATE SITE [None]
  - WRONG TECHNIQUE IN DRUG USAGE PROCESS [None]
